FAERS Safety Report 13113986 (Version 1)
Quarter: 2017Q1

REPORT INFORMATION
  Report Type: Spontaneous
  Country: US (occurrence: US)
  Receive Date: 20170113
  Receipt Date: 20170113
  Transmission Date: 20170428
  Serious: No
  Sender: FDA-Public Use
  Company Number: US-NOVOPROD-520518

PATIENT
  Age: 55 Year
  Sex: Female

DRUGS (3)
  1. SAXENDA [Suspect]
     Active Substance: LIRAGLUTIDE
     Dosage: 2.4 UNK, UNK
     Route: 058
     Dates: start: 201607
  2. SAXENDA [Suspect]
     Active Substance: LIRAGLUTIDE
     Indication: WEIGHT DECREASED
     Dosage: 2.4 MG, QD
     Route: 058
     Dates: start: 201607
  3. SAXENDA [Suspect]
     Active Substance: LIRAGLUTIDE
     Dosage: 3.0 MG, QD
     Route: 060
     Dates: start: 201607, end: 201608

REACTIONS (3)
  - Headache [Recovered/Resolved]
  - Vomiting [Recovered/Resolved]
  - Diarrhoea [Recovered/Resolved]

NARRATIVE: CASE EVENT DATE: 2016
